FAERS Safety Report 4968663-X (Version None)
Quarter: 2006Q2

REPORT INFORMATION
  Report Type: 
  Country: None (occurrence: None)
  Receive Date: 20060411
  Receipt Date: 20051018
  Transmission Date: 20061013
  Serious: Yes (Death)
  Sender: FDA-Public Use
  Company Number: JP-BRISTOL-MYERS SQUIBB COMPANY-13150800

PATIENT
  Age: 71 Year
  Sex: Male

DRUGS (3)
  1. VEPESID [Suspect]
     Indication: MALIGNANT SOFT TISSUE NEOPLASM
     Dosage: DAILY X5 DAYS FOR 4 CYCLES
     Route: 041
     Dates: start: 19970506, end: 19980201
  2. LASTET [Suspect]
     Indication: MALIGNANT SOFT TISSUE NEOPLASM
     Dosage: DAILY X5 DAYS FOR 6 CYCLES
     Route: 048
     Dates: start: 19970701, end: 19971201
  3. IFOMIDE [Concomitant]
     Indication: MALIGNANT SOFT TISSUE NEOPLASM
     Route: 041
     Dates: start: 19970506, end: 19980201

REACTIONS (1)
  - MYELODYSPLASTIC SYNDROME [None]
